FAERS Safety Report 19011215 (Version 1)
Quarter: 2021Q1

REPORT INFORMATION
  Report Type: Spontaneous
  Country: DE (occurrence: DE)
  Receive Date: 20210316
  Receipt Date: 20210316
  Transmission Date: 20210420
  Serious: Yes (Death, Hospitalization, Other)
  Sender: FDA-Public Use
  Company Number: DE-HETERO-HET2021DE00579

PATIENT
  Age: 82 Year
  Sex: Female

DRUGS (8)
  1. BISOPROLOL [Concomitant]
     Active Substance: BISOPROLOL
     Indication: PRODUCT USED FOR UNKNOWN INDICATION
     Dosage: 2.5 MG, BID, 1?0?1?0, TABLETTEN
     Route: 048
  2. INSULIN LISPRO [Concomitant]
     Active Substance: INSULIN LISPRO
     Indication: PRODUCT USED FOR UNKNOWN INDICATION
     Dosage: 8?0?0?0
     Route: 058
  3. KOMBOGLYZE [Suspect]
     Active Substance: METFORMIN HYDROCHLORIDE\SAXAGLIPTIN
     Indication: PRODUCT USED FOR UNKNOWN INDICATION
     Dosage: 1000 MG, 2.5 MG, 1?0?1?0, TABLETTEN (BID)
     Route: 048
  4. ACETYLSALICYLIC ACID [Concomitant]
     Active Substance: ASPIRIN
     Indication: PRODUCT USED FOR UNKNOWN INDICATION
     Dosage: 100 MG, QD, 0?1?0?0, TABLETTEN
     Route: 048
  5. NALOXON [Concomitant]
     Active Substance: NALOXONE HYDROCHLORIDE
     Indication: PRODUCT USED FOR UNKNOWN INDICATION
     Dosage: 4?5 MG, 1?1?1?0, TABLETTEN
     Route: 048
  6. LEVETIRACETAM. [Suspect]
     Active Substance: LEVETIRACETAM
     Indication: PRODUCT USED FOR UNKNOWN INDICATION
     Dosage: 1500 MG, 1?0?1?0 (BID), TABLETTEN
     Route: 048
  7. RAMIPRIL. [Concomitant]
     Active Substance: RAMIPRIL
     Indication: PRODUCT USED FOR UNKNOWN INDICATION
     Dosage: 2.5 MG, 1?0?0?0, TABLETTEN
     Route: 048
  8. ENOXAPARIN [Concomitant]
     Active Substance: ENOXAPARIN
     Indication: PRODUCT USED FOR UNKNOWN INDICATION
     Dosage: 4000 INFECTIVE ENDOCARDITIS (IE), 1?0?0?0 (QD), TABLETTEN
     Route: 048

REACTIONS (5)
  - Condition aggravated [Unknown]
  - Acute respiratory failure [Unknown]
  - Apnoea [Unknown]
  - General physical health deterioration [Unknown]
  - Aspiration [Unknown]
